FAERS Safety Report 4985308-3 (Version None)
Quarter: 2006Q2

REPORT INFORMATION
  Report Type: 
  Country: None (occurrence: None)
  Receive Date: 20060427
  Receipt Date: 20060324
  Transmission Date: 20061013
  Serious: Yes (Hospitalization, Disabling)
  Sender: FDA-Public Use
  Company Number: US-MERCK-0603USA04100

PATIENT
  Age: 71 Year
  Sex: Female
  Weight: 66 kg

DRUGS (9)
  1. VIOXX [Suspect]
     Indication: RHEUMATOID ARTHRITIS
     Route: 048
     Dates: start: 19991101, end: 20040930
  2. PLAQUENIL [Concomitant]
     Indication: ARTHRITIS
     Route: 065
  3. PLAVIX [Concomitant]
     Route: 065
     Dates: start: 20000101, end: 20030101
  4. TYLENOL (CAPLET) [Concomitant]
     Route: 065
  5. ALTACE [Concomitant]
     Indication: BLOOD PRESSURE
     Route: 065
     Dates: start: 20021101
  6. WARFARIN [Concomitant]
     Indication: THROMBOSIS
     Route: 065
     Dates: start: 20030101
  7. ELAVIL [Concomitant]
     Indication: SLEEP DISORDER THERAPY
     Route: 065
     Dates: start: 20040101
  8. EFFEXOR [Concomitant]
     Indication: DEPRESSION
     Route: 065
     Dates: start: 20040101
  9. LIPITOR [Concomitant]
     Route: 065
     Dates: start: 20021101

REACTIONS (7)
  - CEREBROVASCULAR ACCIDENT [None]
  - CERVICOBRACHIAL SYNDROME [None]
  - DEEP VEIN THROMBOSIS [None]
  - DEPRESSION [None]
  - EMOTIONAL DISTRESS [None]
  - MENTAL DISORDER [None]
  - WRIST FRACTURE [None]
